FAERS Safety Report 25305693 (Version 1)
Quarter: 2025Q2

REPORT INFORMATION
  Report Type: Spontaneous
  Country: ES (occurrence: ES)
  Receive Date: 20250513
  Receipt Date: 20250513
  Transmission Date: 20250717
  Serious: Yes (Other)
  Sender: RANBAXY
  Company Number: ES-SUN PHARMACEUTICAL INDUSTRIES LTD-2025RR-507242

PATIENT
  Age: 58 Year
  Sex: Female

DRUGS (7)
  1. PREGABALIN [Suspect]
     Active Substance: PREGABALIN
     Indication: Trigeminal neuralgia
     Dosage: 300 MILLIGRAM, BID
     Route: 065
     Dates: start: 2011
  2. CARBAMAZEPINE [Suspect]
     Active Substance: CARBAMAZEPINE
     Indication: Trigeminal neuralgia
     Dosage: 200 MILLIGRAM, TID
     Route: 065
     Dates: start: 2011
  3. GABAPENTIN [Suspect]
     Active Substance: GABAPENTIN
     Indication: Trigeminal neuralgia
     Dosage: 900 MILLIGRAM, TID
     Route: 065
     Dates: start: 2011
  4. OXCARBAZEPINE [Suspect]
     Active Substance: OXCARBAZEPINE
     Indication: Trigeminal neuralgia
     Dosage: 300 MILLIGRAM, BID
     Route: 065
     Dates: start: 2012
  5. TAPENTADOL [Suspect]
     Active Substance: TAPENTADOL
     Indication: Trigeminal neuralgia
     Dosage: 50 MILLIGRAM, BID
     Route: 065
     Dates: start: 2014
  6. LACOSAMIDE [Suspect]
     Active Substance: LACOSAMIDE
     Indication: Trigeminal neuralgia
     Dosage: 100 MILLIGRAM, BID
     Route: 065
     Dates: start: 2015
  7. DESVENLAFAXINE [Suspect]
     Active Substance: DESVENLAFAXINE
     Indication: Trigeminal neuralgia
     Dosage: 50 MILLIGRAM, DAILY
     Route: 065
     Dates: start: 2017

REACTIONS (3)
  - Drug ineffective [Recovering/Resolving]
  - Therapeutic product effect incomplete [Recovering/Resolving]
  - Drug resistance [Not Recovered/Not Resolved]
